FAERS Safety Report 4565969-3 (Version None)
Quarter: 2005Q1

REPORT INFORMATION
  Report Type: 
  Country: None (occurrence: None)
  Receive Date: 20050128
  Receipt Date: 20050105
  Transmission Date: 20050727
  Serious: Yes (Hospitalization)
  Sender: FDA-Public Use
  Company Number: B0364191A

PATIENT
  Age: 78 Year
  Sex: Male

DRUGS (1)
  1. PAXIL [Suspect]
     Indication: SUICIDAL IDEATION
     Dosage: 10 MG / PER DAY / ORAL
     Route: 048

REACTIONS (6)
  - BLOOD CHLORIDE DECREASED [None]
  - DECREASED APPETITE [None]
  - DEPRESSED LEVEL OF CONSCIOUSNESS [None]
  - INAPPROPRIATE ANTIDIURETIC HORMONE SECRETION [None]
  - SOMNOLENCE [None]
  - VOMITING [None]
